FAERS Safety Report 5189847-4 (Version None)
Quarter: 2006Q4

REPORT INFORMATION
  Report Type: 
  Country: None (occurrence: None)
  Receive Date: 20061215
  Receipt Date: 20061208
  Transmission Date: 20070319
  Serious: Yes (Other)
  Sender: FDA-Public Use
  Company Number: 2006152080

PATIENT
  Age: 33 Year
  Sex: Female

DRUGS (5)
  1. VIRACEPT [Suspect]
     Indication: HIV TEST POSITIVE
     Dosage: 2500 MG, ORAL
     Route: 048
     Dates: start: 20050610
  2. VIDEX [Suspect]
     Indication: HIV TEST POSITIVE
     Dosage: 300 MG, ORAL
     Route: 048
     Dates: start: 20040901
  3. VIRAMUNE [Suspect]
     Indication: HIV TEST POSITIVE
     Dosage: 200 MG, ORAL
     Route: 048
     Dates: start: 20040901, end: 20041007
  4. SUSTIVA [Suspect]
     Indication: HIV TEST POSITIVE
     Dosage: 600 MG, ORAL
     Route: 048
     Dates: start: 20041007, end: 20050610
  5. RETROVIR [Suspect]
     Indication: HIV TEST POSITIVE
     Dosage: 600 MG
     Dates: start: 20040901

REACTIONS (4)
  - BREECH DELIVERY [None]
  - CAESAREAN SECTION [None]
  - DRUG EXPOSURE DURING PREGNANCY [None]
  - STILLBIRTH [None]
